FAERS Safety Report 5584665-7 (Version None)
Quarter: 2008Q1

REPORT INFORMATION
  Report Type: 
  Country: None (occurrence: None)
  Receive Date: 20080103
  Receipt Date: 20071219
  Transmission Date: 20080703
  Serious: Yes (Death)
  Sender: FDA-Public Use
  Company Number: 2007002495

PATIENT
  Age: 45 Year
  Sex: Female

DRUGS (1)
  1. TARCEVA [Suspect]
     Dates: start: 20051015

REACTIONS (6)
  - ANOREXIA [None]
  - BACK PAIN [None]
  - DIARRHOEA [None]
  - MUSCLE ATROPHY [None]
  - MUSCLE SPASMS [None]
  - RASH [None]
